FAERS Safety Report 12443390 (Version 1)
Quarter: 2016Q2

REPORT INFORMATION
  Report Type: Spontaneous
  Country: IN (occurrence: IN)
  Receive Date: 20160607
  Receipt Date: 20160607
  Transmission Date: 20160815
  Serious: Yes (Hospitalization, Other)
  Sender: FDA-Public Use
  Company Number: IN-SCIEGEN PHARMACEUTICALS INC-2016SCILIT00151

PATIENT
  Age: 21 Year
  Sex: Female
  Weight: 25 kg

DRUGS (1)
  1. METFORMIN HYDROCHLORIDE TABLETS, USP [Suspect]
     Active Substance: METFORMIN HYDROCHLORIDE
     Indication: PRODUCT USED FOR UNKNOWN INDICATION
     Dosage: 500 MG, QD
     Route: 048

REACTIONS (14)
  - Hypoglycaemic coma [Unknown]
  - Crying [Unknown]
  - Major depression [Unknown]
  - Sialoadenitis [None]
  - Parotid gland enlargement [None]
  - Depressed mood [Unknown]
  - Drug abuse [Unknown]
  - Anhedonia [Unknown]
  - Insomnia [Unknown]
  - Weight decreased [Recovering/Resolving]
  - Self-induced vomiting [Unknown]
  - Cholelithiasis [Unknown]
  - Intentional overdose [Unknown]
  - Anorexia nervosa [Unknown]
